FAERS Safety Report 5789047-0 (Version None)
Quarter: 2008Q2

REPORT INFORMATION
  Report Type: 
  Country: None (occurrence: None)
  Receive Date: 20080626
  Receipt Date: 20080617
  Transmission Date: 20081010
  Serious: Yes (Hospitalization, Other)
  Sender: FDA-Public Use
  Company Number: B0524229A

PATIENT
  Age: 57 Year
  Sex: Male
  Weight: 70 kg

DRUGS (5)
  1. AVODART [Suspect]
     Dosage: .5MG PER DAY
     Route: 048
  2. RISPERDAL [Concomitant]
     Dosage: 4MG TWICE PER DAY
  3. PROZAC [Concomitant]
  4. HEPTAMYL [Concomitant]
  5. NEXIUM [Concomitant]

REACTIONS (4)
  - ABNORMAL BEHAVIOUR [None]
  - ANXIETY [None]
  - ERECTILE DYSFUNCTION [None]
  - OBSESSIVE THOUGHTS [None]
